FAERS Safety Report 8518926 (Version 2)
Quarter: 2012Q4

REPORT INFORMATION
  Report Type: 
  Country: US (occurrence: US)
  Receive Date: 20120418
  Receipt Date: 20120914
  Transmission Date: 20130627
  Serious: No
  Sender: FDA-Public Use
  Company Number: US-PFIZER INC-2012095192

PATIENT
  Age: 58 Year
  Sex: Female
  Weight: 77.1 kg

DRUGS (13)
  1. CHANTIX [Suspect]
     Indication: SMOKING CESSATION THERAPY
     Dosage: 0.5 mg, daily
     Route: 048
     Dates: start: 20120409
  2. CHANTIX [Suspect]
     Dosage: UNK
     Route: 048
  3. LORAZEPAM [Concomitant]
     Indication: ANXIETY
     Dosage: 1 mg, 3x/day
  4. SEROQUEL [Concomitant]
     Indication: AFFECTIVE DISORDER
     Dosage: 300 mg, daily
  5. FUROSEMIDE [Concomitant]
     Indication: FLUID RETENTION
     Dosage: UNK
  6. PRILOSEC [Concomitant]
     Indication: DYSPEPSIA
     Dosage: UNK, daily
  7. ZOLOFT [Concomitant]
     Indication: DEPRESSION
     Dosage: 50 mg, daily
  8. ZANTAC [Concomitant]
     Indication: PANCREATIC DISORDER
     Dosage: UNK
  9. ADVAIR [Concomitant]
     Indication: ASTHMA
     Dosage: UNK
  10. ACYCLOVIR [Concomitant]
     Indication: HERPES ZOSTER
     Dosage: UNK
  11. VENTOLIN [Concomitant]
     Indication: CHRONIC OBSTRUCTIVE PULMONARY DISEASE
     Dosage: UNK, as needed
  12. MULTIVITAMINS, PLAIN [Concomitant]
     Dosage: UNK
  13. ACETYLSALICYLIC ACID [Concomitant]
     Indication: CARDIAC DISORDER
     Dosage: UNK

REACTIONS (1)
  - Emotional distress [Unknown]
